FAERS Safety Report 14528611 (Version 1)
Quarter: 2018Q1

REPORT INFORMATION
  Report Type: Report from Study
  Country: BR (occurrence: BR)
  Receive Date: 20180214
  Receipt Date: 20180214
  Transmission Date: 20180509
  Serious: Yes (Other)
  Sender: FDA-Public Use
  Company Number: BR-ACCORD-063208

PATIENT
  Age: 12 Year
  Sex: Female

DRUGS (3)
  1. PREDNISONE. [Suspect]
     Active Substance: PREDNISONE
     Indication: BLAU SYNDROME
     Route: 048
  2. METHOTREXATE. [Suspect]
     Active Substance: METHOTREXATE
     Indication: BLAU SYNDROME
  3. CICLOSPORIN [Suspect]
     Active Substance: CYCLOSPORINE
     Indication: BLAU SYNDROME

REACTIONS (2)
  - Iris adhesions [Recovering/Resolving]
  - Off label use [Unknown]
